FAERS Safety Report 8130585-3 (Version None)
Quarter: 2012Q1

REPORT INFORMATION
  Report Type: 
  Country: None (occurrence: None)
  Receive Date: 20120212
  Receipt Date: 20120207
  Transmission Date: 20120608
  Serious: Yes (Other)
  Sender: FDA-Public Use
  Company Number: US-TEVA-2011006371

PATIENT

DRUGS (1)
  1. PROVIGIL [Suspect]
     Route: 048
     Dates: start: 20110823, end: 20110928

REACTIONS (7)
  - EMOTIONAL DISORDER [None]
  - DEPRESSED MOOD [None]
  - SUICIDAL IDEATION [None]
  - MUSCLE SPASMS [None]
  - HEADACHE [None]
  - ANGER [None]
  - PAIN [None]
